FAERS Safety Report 4273801-0 (Version None)
Quarter: 2004Q1

REPORT INFORMATION
  Report Type: 
  Country: None (occurrence: None)
  Receive Date: 20040115
  Receipt Date: 20040106
  Transmission Date: 20041129
  Serious: Yes (Hospitalization)
  Sender: FDA-Public Use
  Company Number: NSADSS2003003590

PATIENT
  Age: 66 Year
  Sex: Male

DRUGS (12)
  1. REMICADE [Suspect]
     Indication: RHEUMATOID ARTHRITIS
     Dosage: INTRAVENOUS
     Route: 042
     Dates: start: 20021001, end: 20021001
  2. ASPIRIN [Concomitant]
  3. NEURONTIN [Concomitant]
  4. LOPRESSOR [Concomitant]
  5. PREDNISONE [Concomitant]
  6. FOLIC ACID [Concomitant]
  7. SPORANOX [Concomitant]
  8. HUMULIN (NOVOLIN 20/80) [Concomitant]
  9. HUMULIN 70/30 (HUMAN MIXTARD) [Concomitant]
  10. DARVOCET-N 100 [Concomitant]
  11. OCUVITE (OCUVITE) [Concomitant]
  12. GLUCOPHAGE [Concomitant]

REACTIONS (6)
  - ALPHA HAEMOLYTIC STREPTOCOCCAL INFECTION [None]
  - AORTIC VALVE SCLEROSIS [None]
  - HISTOPLASMOSIS DISSEMINATED [None]
  - LUNG ABSCESS [None]
  - PNEUMONITIS [None]
  - PULMONARY VALVE SCLEROSIS [None]
